FAERS Safety Report 4832361-3 (Version None)
Quarter: 2005Q4

REPORT INFORMATION
  Report Type: 
  Country: None (occurrence: None)
  Receive Date: 20051116
  Receipt Date: 20051116
  Transmission Date: 20060501
  Serious: Yes (Other)
  Sender: FDA-Public Use
  Company Number: None

PATIENT
  Age: 54 Year
  Sex: Female
  Weight: 52.3 kg

DRUGS (3)
  1. ISOVUE-300 [Suspect]
     Indication: SCAN WITH CONTRAST
     Dosage: 130 ML IV X 1
     Route: 042
     Dates: start: 20050427
  2. MULTIPLE DRUGS [Concomitant]
  3. NS [Concomitant]

REACTIONS (2)
  - RESPIRATORY DISORDER [None]
  - THROAT TIGHTNESS [None]
